FAERS Safety Report 13026224 (Version 1)
Quarter: 2016Q4

REPORT INFORMATION
  Report Type: Spontaneous
  Country: US (occurrence: US)
  Receive Date: 20161213
  Receipt Date: 20161213
  Transmission Date: 20170207
  Serious: No
  Sender: FDA-Public Use
  Company Number: None

PATIENT
  Age: 83 Year
  Sex: Female
  Weight: 59.4 kg

DRUGS (15)
  1. COENZYME Q-10 [Concomitant]
  2. LAXIS [Concomitant]
  3. PROCHLORPERAZINE. [Concomitant]
     Active Substance: PROCHLORPERAZINE
  4. METOPROLOL TART [Concomitant]
     Active Substance: METOPROLOL TARTRATE
  5. KLOR-CON [Concomitant]
     Active Substance: POTASSIUM CHLORIDE
  6. CALTRATE [Concomitant]
     Active Substance: CALCIUM CARBONATE
  7. MIRALAX [Concomitant]
     Active Substance: POLYETHYLENE GLYCOL 3350
  8. FERROUS SULFATE. [Concomitant]
     Active Substance: FERROUS SULFATE
  9. GARLIC OIL [Concomitant]
     Active Substance: GARLIC OIL
  10. IBUPROFEN. [Concomitant]
     Active Substance: IBUPROFEN
  11. PLAVIX [Concomitant]
     Active Substance: CLOPIDOGREL BISULFATE
  12. VYTORIN [Concomitant]
     Active Substance: EZETIMIBE\SIMVASTATIN
  13. HEXALEN [Suspect]
     Active Substance: ALTRETAMINE
     Route: 048
  14. PROTONIX [Concomitant]
     Active Substance: PANTOPRAZOLE SODIUM
  15. ASPIRIN. [Concomitant]
     Active Substance: ASPIRIN

REACTIONS (1)
  - Cough [None]

NARRATIVE: CASE EVENT DATE: 20161213
